FAERS Safety Report 9282197 (Version 1)
Quarter: 2013Q2

REPORT INFORMATION
  Report Type: Spontaneous
  Country: US (occurrence: None)
  Receive Date: 20130508
  Receipt Date: 20130508
  Transmission Date: 20140414
  Serious: Yes (Other)
  Sender: FDA-Public Use
  Company Number: None

PATIENT
  Age: 15 Year
  Sex: Male
  Weight: 47.63 kg

DRUGS (1)
  1. LEXAPRO [Suspect]
     Indication: ANXIETY
     Route: 048
     Dates: start: 20120101, end: 20130428

REACTIONS (1)
  - Suicidal ideation [None]
